FAERS Safety Report 5345009-9 (Version None)
Quarter: 2007Q2

REPORT INFORMATION
  Report Type: 
  Country: None (occurrence: None)
  Receive Date: 20070416
  Receipt Date: 20061121
  Transmission Date: 20071010
  Serious: No
  Sender: FDA-Public Use
  Company Number: 2006SP004492

PATIENT
  Age: 45 Year
  Sex: Female
  Weight: 69.4003 kg

DRUGS (7)
  1. LUNESTA [Suspect]
     Indication: INSOMNIA
     Dosage: SEE IMAGE
     Route: 048
     Dates: start: 20060101, end: 20060101
  2. LUNESTA [Suspect]
     Indication: INSOMNIA
     Dosage: SEE IMAGE
     Route: 048
     Dates: start: 20060101
  3. DESLORATADINE [Concomitant]
  4. RIZATRIPTAN BENZOATE [Concomitant]
  5. DEMULEN 1/35-21 [Concomitant]
  6. PROZAC [Concomitant]
  7. VICODIN [Concomitant]

REACTIONS (1)
  - MIDDLE INSOMNIA [None]
